FAERS Safety Report 18518453 (Version 1)
Quarter: 2020Q4

REPORT INFORMATION
  Report Type: Spontaneous
  Country: GB (occurrence: GB)
  Receive Date: 20201118
  Receipt Date: 20201118
  Transmission Date: 20210114
  Serious: Yes (Life-Threatening, Other)
  Sender: FDA-Public Use
  Company Number: GB-ALLERGAN-2044701US

PATIENT
  Sex: Male
  Weight: 65 kg

DRUGS (3)
  1. LATANOPROST. [Suspect]
     Active Substance: LATANOPROST
     Indication: OCULAR HYPERTENSION
     Dosage: ONE DROP PER DAY BOTH EYES
     Route: 047
     Dates: start: 20181008, end: 20190319
  2. COSOPT [Concomitant]
     Active Substance: DORZOLAMIDE HYDROCHLORIDE\TIMOLOL MALEATE
  3. BIMATOPROST UNK [Suspect]
     Active Substance: BIMATOPROST
     Indication: OCULAR HYPERTENSION
     Dosage: ONE DROP PER DAY BOTH EYES
     Route: 047
     Dates: start: 20170215, end: 20181008

REACTIONS (1)
  - Dyspnoea exertional [Recovered/Resolved with Sequelae]

NARRATIVE: CASE EVENT DATE: 20180701
